FAERS Safety Report 6700462-0 (Version None)
Quarter: 2010Q2

REPORT INFORMATION
  Report Type: 
  Country: None (occurrence: None)
  Receive Date: 20100428
  Receipt Date: 20100419
  Transmission Date: 20101027
  Serious: Yes (Hospitalization, Other)
  Sender: FDA-Public Use
  Company Number: US-PFIZER INC-2010049614

PATIENT
  Age: 68 Year
  Sex: Female

DRUGS (3)
  1. LIPITOR [Suspect]
  2. BACLOFEN [Suspect]
     Route: 037
  3. AVONEX [Suspect]
     Dosage: UNK

REACTIONS (2)
  - LIP SWELLING [None]
  - SWOLLEN TONGUE [None]
